FAERS Safety Report 8335429-2 (Version None)
Quarter: 2012Q2

REPORT INFORMATION
  Report Type: 
  Country: None (occurrence: None)
  Receive Date: 20120503
  Receipt Date: 20120425
  Transmission Date: 20120825
  Serious: Yes (Life-Threatening, Hospitalization)
  Sender: FDA-Public Use
  Company Number: JP-ROCHE-638907

PATIENT
  Sex: Female

DRUGS (16)
  1. ACTEMRA [Suspect]
     Route: 041
     Dates: start: 20080609, end: 20080609
  2. RUEFRIEN [Concomitant]
     Route: 048
  3. ACTEMRA [Suspect]
     Route: 041
     Dates: start: 20080910, end: 20080910
  4. SILVER SULFADIAZINE [Concomitant]
     Dosage: DRUG: GEBEN
     Route: 061
  5. ACTEMRA [Suspect]
     Indication: RHEUMATOID ARTHRITIS
     Route: 041
     Dates: start: 20080512, end: 20080512
  6. LOXONIN [Concomitant]
     Dosage: FORM: ORAL FORMULATION (NOT OTHERWISE SPECIFIED)
     Route: 048
  7. ONEALFA [Concomitant]
     Route: 048
  8. ACTEMRA [Suspect]
     Route: 041
     Dates: start: 20080811, end: 20080811
  9. ACTEMRA [Suspect]
     Route: 041
     Dates: start: 20081006, end: 20081006
  10. METHOTREXATE [Concomitant]
     Route: 048
  11. KETOPROFEN [Concomitant]
     Dosage: FORM: TAPE DOSE ADJUSTED
     Route: 061
  12. ACTEMRA [Suspect]
     Route: 041
     Dates: start: 20080714, end: 20080714
  13. ACTEMRA [Suspect]
     Route: 041
  14. ALFAROL [Concomitant]
     Dosage: DRUG: ALFAROL CAPSULES
     Route: 048
  15. FOSAMAX [Concomitant]
     Dosage: DRUG: FOSAMAC 35MG (ALENDRONATE SODIUM HYDRATE)
     Route: 048
  16. KETOPROFEN [Concomitant]
     Dosage: DRUG: SECTOR:LOTION DOSE ADJUSTED
     Route: 061

REACTIONS (4)
  - NECROTISING FASCIITIS [None]
  - BETA HAEMOLYTIC STREPTOCOCCAL INFECTION [None]
  - SYSTEMIC INFLAMMATORY RESPONSE SYNDROME [None]
  - DISSEMINATED INTRAVASCULAR COAGULATION [None]
